FAERS Safety Report 17495381 (Version 1)
Quarter: 2020Q1

REPORT INFORMATION
  Report Type: Spontaneous
  Country: US (occurrence: US)
  Receive Date: 20200221
  Receipt Date: 20200221
  Transmission Date: 20200409
  Serious: Yes (Hospitalization)
  Sender: FDA-Public Use
  Company Number: None

PATIENT
  Age: 61 Year
  Sex: Male
  Weight: 80 kg

DRUGS (2)
  1. ETOPOSIDE (ETOPOSIDE 100MG/VIL INJ) [Suspect]
     Active Substance: ETOPOSIDE
     Indication: ANGIOGRAM
     Dosage: ?          OTHER STRENGTH:100MG/VL;?
     Route: 058
     Dates: start: 20191021, end: 20191027
  2. CYTARABINE (CYTARABINE 100MG /VIL INJ) [Suspect]
     Active Substance: CYTARABINE
     Indication: CENTRAL NERVOUS SYSTEM LYMPHOMA
     Dosage: ?          OTHER STRENGTH:100MG/VL;?
     Route: 058
     Dates: start: 20191021, end: 20191025

REACTIONS (5)
  - Mucosal haemorrhage [None]
  - Neutropenic colitis [None]
  - Colitis [None]
  - Thrombocytopenia [None]
  - Bacteraemia [None]
